FAERS Safety Report 5416521-9 (Version None)
Quarter: 2007Q3

REPORT INFORMATION
  Report Type: 
  Country: None (occurrence: None)
  Receive Date: 20070814
  Receipt Date: 20070803
  Transmission Date: 20080115
  Serious: Yes (Other)
  Sender: FDA-Public Use
  Company Number: E2090-00281-SPO-ES

PATIENT
  Age: 52 Year
  Sex: Female

DRUGS (2)
  1. ZONEGRAN [Suspect]
     Indication: EPILEPSY
     Dosage: 500 MG, ORAL
     Route: 048
     Dates: start: 20060908
  2. TOPAMAX [Suspect]
     Indication: EPILEPSY
     Dosage: 200 MG, ORAL
     Route: 048
     Dates: start: 19980804, end: 20070610

REACTIONS (3)
  - CALCULUS URINARY [None]
  - DRUG INTERACTION [None]
  - URINARY TRACT INFECTION [None]
